FAERS Safety Report 15143189 (Version 2)
Quarter: 2018Q3

REPORT INFORMATION
  Report Type: Spontaneous
  Country: DE (occurrence: DE)
  Receive Date: 20180713
  Receipt Date: 20180726
  Transmission Date: 20181010
  Serious: Yes (Death, Hospitalization)
  Sender: FDA-Public Use
  Company Number: PHHY2014DE185188

PATIENT
  Age: 86 Year
  Sex: Female
  Weight: 67 kg

DRUGS (18)
  1. 5?FLUOROURACIL [Suspect]
     Active Substance: FLUOROURACIL
     Dosage: 600 MG (EVERY 15 DAYS)
     Route: 040
     Dates: start: 20140213, end: 20140331
  2. 5?FLUOROURACIL [Suspect]
     Active Substance: FLUOROURACIL
     Dosage: 3500 MG (EVERY 15 DAYS)
     Route: 041
     Dates: start: 20140213, end: 20140401
  3. AVASTIN [Suspect]
     Active Substance: BEVACIZUMAB
     Dosage: 300 MG, UNK
     Route: 042
  4. FOLINIC ACID [Suspect]
     Active Substance: LEUCOVORIN
     Dosage: 700 MG, UNK
     Route: 042
     Dates: start: 20130902, end: 20140121
  5. AVASTIN [Suspect]
     Active Substance: BEVACIZUMAB
     Indication: COLORECTAL CANCER
     Dosage: 350 MG, UNK
     Route: 042
     Dates: start: 20130902, end: 20140121
  6. PANTOZOL [Concomitant]
     Active Substance: PANTOPRAZOLE SODIUM
     Indication: PROPHYLAXIS
     Dosage: 80 MG, QD (1?0?1 )
     Route: 048
     Dates: start: 20130726
  7. PANTOZOL [Concomitant]
     Active Substance: PANTOPRAZOLE SODIUM
     Dosage: 40 MG, QD (1?0?1 )
     Route: 048
     Dates: start: 20130726, end: 20140428
  8. TARGIN [Concomitant]
     Active Substance: NALOXONE HYDROCHLORIDE\OXYCODONE HYDROCHLORIDE
     Indication: TUMOUR PAIN
     Dosage: 1 DF, BID
     Route: 048
     Dates: start: 20140212
  9. PALLADON [Concomitant]
     Active Substance: HYDROMORPHONE
     Dosage: 4 MG, BID (1?0?1)
     Route: 048
     Dates: start: 20140110, end: 20140428
  10. OXALIPLATIN. [Suspect]
     Active Substance: OXALIPLATIN
     Indication: COLORECTAL CANCER
     Dosage: 150 MG (EVERY 15 DAYS)
     Route: 042
     Dates: start: 20130902, end: 20140121
  11. 5?FLUOROURACIL [Suspect]
     Active Substance: FLUOROURACIL
     Indication: COLORECTAL CANCER
     Dosage: 700 MG (EVERY 15 DAYS)
     Route: 040
     Dates: start: 20130902, end: 20140121
  12. 5?FLUOROURACIL [Suspect]
     Active Substance: FLUOROURACIL
     Dosage: 4000 MG, Q48H
     Route: 041
     Dates: start: 20130902, end: 20140122
  13. FOLINIC ACID [Suspect]
     Active Substance: LEUCOVORIN
     Indication: COLORECTAL CANCER
     Dosage: 650 MG, UNK
     Route: 042
     Dates: start: 20140213, end: 20140331
  14. PALLADON [Concomitant]
     Active Substance: HYDROMORPHONE
     Indication: TUMOUR PAIN
     Dosage: 8 MG, BID(1?0?1)
     Route: 048
     Dates: start: 20140110
  15. LYRICA [Concomitant]
     Active Substance: PREGABALIN
     Dosage: 75 MG, QD (1?0?1)
     Route: 048
     Dates: start: 20140110, end: 20140428
  16. NOVALGIN (METAMIZOLE SODIUM) [Concomitant]
     Active Substance: METAMIZOLE SODIUM
     Indication: TUMOUR PAIN
     Dosage: 60 GTT, QD (1?1?1 )
     Route: 048
     Dates: start: 20140110
  17. OXALIPLATIN. [Suspect]
     Active Substance: OXALIPLATIN
     Dosage: 130 MG (EVERY 15 DAYS)
     Route: 042
     Dates: start: 20140213, end: 20140331
  18. LYRICA [Concomitant]
     Active Substance: PREGABALIN
     Indication: POLYNEUROPATHY
     Dosage: 150 MG, QD (1?0?1 )
     Route: 048
     Dates: start: 20140110

REACTIONS (9)
  - Vomiting [Recovered/Resolved]
  - Nausea [Recovered/Resolved]
  - Hemiparesis [Unknown]
  - Cerebrovascular accident [Fatal]
  - Duodenal ulcer [Recovered/Resolved]
  - Gastrooesophageal reflux disease [Recovered/Resolved]
  - Dehydration [Recovered/Resolved]
  - Gastric ulcer [Recovered/Resolved]
  - Malignant neoplasm progression [Unknown]

NARRATIVE: CASE EVENT DATE: 20140131
